FAERS Safety Report 14775359 (Version 1)
Quarter: 2018Q2

REPORT INFORMATION
  Report Type: Report from Study
  Country: None (occurrence: ES)
  Receive Date: 20180418
  Receipt Date: 20180418
  Transmission Date: 20180711
  Serious: Yes (Life-Threatening, Hospitalization)
  Sender: FDA-Public Use
  Company Number: ES-BAUSCH-BL-2018-009997

PATIENT
  Age: 53 Year
  Sex: Female

DRUGS (8)
  1. METFORMINA [Suspect]
     Active Substance: METFORMIN HYDROCHLORIDE
     Indication: DIABETES MELLITUS
     Route: 048
     Dates: start: 20170817, end: 20170909
  2. EMULIQUEN LAXANTE (CHONDRUS CRISPUS\PARAFFIN\PHENOLPHTHALEIN) [Suspect]
     Active Substance: CHONDRUS CRISPUS\PARAFFIN\PHENOLPHTHALEIN
     Indication: PRODUCT USED FOR UNKNOWN INDICATION
     Dosage: 478.26 MG / ML PLUS 0.3 MG / ML ORAL EMULSION, 1 BOTTLE
     Route: 048
     Dates: start: 20170817, end: 20170909
  3. LESCOL PROLIB 80 MG [Concomitant]
     Indication: PRODUCT USED FOR UNKNOWN INDICATION
     Dosage: COMPRESS, 28 TABLETS, 0-0-1
     Route: 048
     Dates: start: 20060101
  4. FUROSEMIDA [Concomitant]
     Active Substance: FUROSEMIDE
     Indication: PRODUCT USED FOR UNKNOWN INDICATION
     Dosage: 1-0-0 (40MG)
     Route: 048
     Dates: start: 20150101
  5. PULMICORT TURBUHALER [Concomitant]
     Active Substance: BUDESONIDE
     Indication: PRODUCT USED FOR UNKNOWN INDICATION
     Dosage: SUSPENSION FOR INHALATION BY NEBULIZER 100 AMPOULES OF 2 ML
     Route: 055
     Dates: start: 20060101
  6. OMEPRAZOL [Concomitant]
     Active Substance: OMEPRAZOLE
     Indication: PRODUCT USED FOR UNKNOWN INDICATION
     Dosage: 1 CP DAY (20 MG) 983 DAYS
     Route: 048
     Dates: start: 20150101
  7. MICARDIS [Concomitant]
     Active Substance: TELMISARTAN
     Indication: PRODUCT USED FOR UNKNOWN INDICATION
     Dosage: COMPRESS; 0-0-1
     Route: 048
     Dates: start: 20150101
  8. PREDNISONA [Concomitant]
     Active Substance: PREDNISONE
     Indication: PRODUCT USED FOR UNKNOWN INDICATION
     Route: 048
     Dates: start: 20150101

REACTIONS (4)
  - Lactic acidosis [Recovered/Resolved]
  - Acute kidney injury [Recovered/Resolved]
  - Hyponatraemia [Recovered/Resolved]
  - Hyperkalaemia [Recovered/Resolved]

NARRATIVE: CASE EVENT DATE: 20170909
